FAERS Safety Report 7173744-9 (Version None)
Quarter: 2010Q4

REPORT INFORMATION
  Report Type: 
  Country: None (occurrence: None)
  Receive Date: 20101202
  Receipt Date: 20101105
  Transmission Date: 20110411
  Serious: Yes (Other)
  Sender: FDA-Public Use
  Company Number: 018562

PATIENT
  Sex: Female
  Weight: 50 kg

DRUGS (2)
  1. EQUASYM (EQUASYM RETARD) [Suspect]
     Dosage: 1200 MG ORAL
     Route: 048
     Dates: start: 20100901
  2. IBUPROFEN [Suspect]
     Dosage: 3600 MG ORAL
     Route: 048
     Dates: start: 20100901

REACTIONS (5)
  - FATIGUE [None]
  - HYPERVENTILATION [None]
  - INCORRECT DOSE ADMINISTERED [None]
  - MYDRIASIS [None]
  - SUICIDE ATTEMPT [None]
